FAERS Safety Report 15160764 (Version 6)
Quarter: 2019Q1

REPORT INFORMATION
  Report Type: Report from Study
  Country: US (occurrence: US)
  Receive Date: 20180718
  Receipt Date: 20190221
  Transmission Date: 20190417
  Serious: Yes (Life-Threatening, Hospitalization, Disabling, Other)
  Sender: FDA-Public Use
  Company Number: US-TAKEDA-2018MPI006350

PATIENT
  Age: 82 Year
  Sex: Male
  Weight: 83 kg

DRUGS (28)
  1. DECADRON [Suspect]
     Active Substance: DEXAMETHASONE
     Dosage: 10 MG, UNK
     Route: 042
     Dates: start: 20170816, end: 20180515
  2. GRAPE SEED EXTRACT                 /01364603/ [Concomitant]
  3. MAG-OX [Concomitant]
     Active Substance: MAGNESIUM OXIDE
  4. BORTEZOMIB. [Suspect]
     Active Substance: BORTEZOMIB
     Indication: PLASMA CELL MYELOMA
     Dosage: 2 MG, UNK
     Route: 058
     Dates: start: 20161129, end: 20170802
  5. DECADRON [Suspect]
     Active Substance: DEXAMETHASONE
     Dosage: 8 MG, UNK
     Route: 042
     Dates: start: 20180613
  6. AMLODIPINE BESYLATE. [Concomitant]
     Active Substance: AMLODIPINE BESYLATE
  7. K FLEX [Concomitant]
     Active Substance: ORPHENADRINE
  8. CYTOXAN [Suspect]
     Active Substance: CYCLOPHOSPHAMIDE
     Indication: PLASMA CELL MYELOMA
     Dosage: 500 MG, UNK
     Route: 048
     Dates: start: 20170816
  9. CYTOXAN [Suspect]
     Active Substance: CYCLOPHOSPHAMIDE
     Dosage: 250 MG, UNK
     Route: 048
     Dates: start: 20170906, end: 20180515
  10. IRON [Concomitant]
     Active Substance: IRON
  11. UBIDECARENONE [Concomitant]
     Active Substance: UBIDECARENONE
  12. BORTEZOMIB. [Suspect]
     Active Substance: BORTEZOMIB
     Dosage: 2 MG, UNK
     Route: 058
     Dates: start: 20170816, end: 20180515
  13. NOVOLOG [Concomitant]
     Active Substance: INSULIN ASPART
  14. VIIBRYD [Concomitant]
     Active Substance: VILAZODONE HYDROCHLORIDE
  15. VITAMIN B12 [Concomitant]
     Active Substance: CYANOCOBALAMIN
  16. ASPIRIN                            /00002701/ [Concomitant]
     Active Substance: ASPIRIN
     Indication: EMBOLISM VENOUS
  17. CYTOXAN [Suspect]
     Active Substance: CYCLOPHOSPHAMIDE
     Dosage: 350 MG, UNK
     Route: 065
     Dates: start: 20171116
  18. DECADRON [Suspect]
     Active Substance: DEXAMETHASONE
     Indication: PLASMA CELL MYELOMA
     Dosage: 10 MG, UNK
     Route: 042
     Dates: start: 20161129, end: 20170802
  19. ACYCLOVIR                          /00587301/ [Concomitant]
     Active Substance: ACYCLOVIR
  20. FOLIC ACID. [Concomitant]
     Active Substance: FOLIC ACID
  21. VITAMIN C [Concomitant]
     Active Substance: ASCORBIC ACID
  22. DIPHENHYDRAMINE HCL [Concomitant]
     Active Substance: DIPHENHYDRAMINE HYDROCHLORIDE
  23. LEVEMIR [Concomitant]
     Active Substance: INSULIN DETEMIR
  24. MELATONIN [Concomitant]
     Active Substance: MELATONIN
  25. MUCINEX [Concomitant]
     Active Substance: GUAIFENESIN
  26. CARVEDILOL. [Concomitant]
     Active Substance: CARVEDILOL
  27. PANTOPRAZOLE [Concomitant]
     Active Substance: PANTOPRAZOLE
  28. TAMSULOSIN [Concomitant]
     Active Substance: TAMSULOSIN

REACTIONS (4)
  - Clostridium difficile colitis [Recovered/Resolved]
  - Muscular weakness [Not Recovered/Not Resolved]
  - Cardiac failure congestive [Not Recovered/Not Resolved]
  - Fall [Recovered/Resolved]

NARRATIVE: CASE EVENT DATE: 20180306
